FAERS Safety Report 9318966 (Version 3)
Quarter: 2013Q3

REPORT INFORMATION
  Report Type: Spontaneous
  Country: VE (occurrence: None)
  Receive Date: 20130524
  Receipt Date: 20130808
  Transmission Date: 20140515
  Serious: Yes (Death, Hospitalization)
  Sender: FDA-Public Use
  Company Number: 2013VE0185

PATIENT
  Age: 8 Year
  Sex: Female

DRUGS (1)
  1. ORFADIN [Suspect]
     Indication: TYROSINAEMIA
     Dosage: ONE DOSE PER DAY.
     Dates: start: 20100511, end: 20130101

REACTIONS (12)
  - Organ failure [None]
  - General physical health deterioration [None]
  - Renal failure [None]
  - Dysphagia [None]
  - Abdominal pain [None]
  - Paralysis [None]
  - Hypokalaemia [None]
  - Hypomagnesaemia [None]
  - Transaminases increased [None]
  - Metabolic disorder [None]
  - Treatment noncompliance [None]
  - Crime [None]
